FAERS Safety Report 4853204-8 (Version None)
Quarter: 2005Q4

REPORT INFORMATION
  Report Type: 
  Country: None (occurrence: None)
  Receive Date: 20051212
  Receipt Date: 20051128
  Transmission Date: 20060501
  Serious: Yes (Hospitalization)
  Sender: FDA-Public Use
  Company Number: 2005BI010108

PATIENT
  Age: 57 Year
  Sex: Female
  Weight: 58.0604 kg

DRUGS (4)
  1. AVONEX [Suspect]
     Indication: MULTIPLE SCLEROSIS
     Dosage: 30 UG; QW; IM
     Route: 030
     Dates: start: 19970615, end: 20000615
  2. AVONEX [Suspect]
     Indication: MULTIPLE SCLEROSIS
     Dosage: 30 UG; QW; IM
     Route: 030
     Dates: start: 20050421
  3. KLONOPIN [Concomitant]
  4. ZANAFLEX [Concomitant]

REACTIONS (18)
  - BACK PAIN [None]
  - CONDITION AGGRAVATED [None]
  - COORDINATION ABNORMAL [None]
  - DECREASED APPETITE [None]
  - DELIRIUM [None]
  - DEPRESSION [None]
  - DIFFICULTY IN WALKING [None]
  - FATIGUE [None]
  - INFLUENZA LIKE ILLNESS [None]
  - INSOMNIA [None]
  - MUSCLE SPASTICITY [None]
  - NEUROGENIC BLADDER [None]
  - OPTIC NEURITIS [None]
  - PSYCHOTIC DISORDER [None]
  - SEPSIS [None]
  - URINARY TRACT INFECTION PSEUDOMONAL [None]
  - VISUAL FIELD DEFECT [None]
  - WEIGHT DECREASED [None]
